FAERS Safety Report 23066826 (Version 1)
Quarter: 2023Q4

REPORT INFORMATION
  Report Type: Spontaneous
  Country: PL (occurrence: PL)
  Receive Date: 20231016
  Receipt Date: 20231016
  Transmission Date: 20240109
  Serious: Yes (Hospitalization, Other)
  Sender: FDA-Public Use
  Company Number: PL-VELOXIS PHARMACEUTICALS, INC.-2023-VEL-00648

PATIENT
  Age: 19 Year
  Sex: Male

DRUGS (1)
  1. TACROLIMUS [Suspect]
     Active Substance: TACROLIMUS
     Indication: Heart transplant
     Dosage: UNK

REACTIONS (5)
  - Heart transplant failure [Recovered/Resolved]
  - Heart transplant rejection [Recovered/Resolved]
  - B-cell lymphoma [Unknown]
  - Epstein-Barr virus infection [Unknown]
  - Off label use [Unknown]
